FAERS Safety Report 8505416-X (Version None)
Quarter: 2012Q3

REPORT INFORMATION
  Report Type: 
  Country: None (occurrence: None)
  Receive Date: 20120712
  Receipt Date: 20120629
  Transmission Date: 20120928
  Serious: Yes (Other)
  Sender: FDA-Public Use
  Company Number: BR-AMGEN-BRASP2012022019

PATIENT
  Age: 34 Year
  Sex: Female
  Weight: 42 kg

DRUGS (4)
  1. DIPYRONE [Concomitant]
     Dosage: UNK
  2. ENBREL [Suspect]
     Indication: ANKYLOSING SPONDYLITIS
     Dosage: 50 MG, ONCE WEEKLY
     Route: 058
     Dates: start: 20110515, end: 20110901
  3. ENBREL [Suspect]
     Dosage: 50 MG, QWK
     Route: 058
     Dates: start: 20111001
  4. ENOXAPARIN SODIUM [Concomitant]
     Dosage: UNK

REACTIONS (2)
  - HIP ARTHROPLASTY [None]
  - INJECTION SITE PAIN [None]
